FAERS Safety Report 6035681-2 (Version None)
Quarter: 2009Q1

REPORT INFORMATION
  Report Type: 
  Country: None (occurrence: None)
  Receive Date: 20090113
  Receipt Date: 20090107
  Transmission Date: 20090719
  Serious: Yes (Hospitalization)
  Sender: FDA-Public Use
  Company Number: US-BIOGENIDEC-2008BI010602

PATIENT
  Age: 46 Year
  Sex: Female

DRUGS (2)
  1. AVONEX [Suspect]
     Indication: MULTIPLE SCLEROSIS
     Route: 030
     Dates: start: 20070301, end: 20081106
  2. AVONEX [Suspect]
     Route: 030

REACTIONS (3)
  - ADRENAL INSUFFICIENCY [None]
  - BLOOD PRESSURE DECREASED [None]
  - HEART RATE DECREASED [None]
